FAERS Safety Report 16791583 (Version 1)
Quarter: 2019Q3

REPORT INFORMATION
  Report Type: Spontaneous
  Country: US (occurrence: US)
  Receive Date: 20190910
  Receipt Date: 20190910
  Transmission Date: 20191005
  Serious: Yes (Hospitalization)
  Sender: FDA-Public Use
  Company Number: US-BRAINTREE LABORATORIES-190487

PATIENT
  Age: 65 Year
  Sex: Female
  Weight: 62.6 kg

DRUGS (1)
  1. SUPREP BOWEL PREP [Suspect]
     Active Substance: MAGNESIUM SULFATE\POTASSIUM SULFATE\SODIUM SULFATE
     Indication: COLONOSCOPY
     Dosage: 2 X 6 OZ. BOTTLE
     Route: 048
     Dates: start: 20190827, end: 20190827

REACTIONS (4)
  - Tachycardia [None]
  - Blood potassium decreased [None]
  - Atrial fibrillation [None]
  - Asthenia [None]

NARRATIVE: CASE EVENT DATE: 20190828
